FAERS Safety Report 17927909 (Version 6)
Quarter: 2023Q4

REPORT INFORMATION
  Report Type: Report from Study
  Country: BR (occurrence: BR)
  Receive Date: 20200622
  Receipt Date: 20231128
  Transmission Date: 20240109
  Serious: Yes (Hospitalization, Other)
  Sender: FDA-Public Use
  Company Number: NVSC2019BR069358

PATIENT
  Age: 54 Year
  Sex: Female
  Weight: 61 kg

DRUGS (9)
  1. KISQALI [Suspect]
     Active Substance: RIBOCICLIB
     Indication: Breast cancer
     Dosage: UNK
     Route: 065
     Dates: start: 20191204
  2. KISQALI [Suspect]
     Active Substance: RIBOCICLIB
     Dosage: 200 MG (3 TABLETS FOR 21 DAYS)
     Route: 065
     Dates: start: 20191206
  3. KISQALI [Suspect]
     Active Substance: RIBOCICLIB
     Dosage: UNK
     Route: 065
     Dates: start: 20191212
  4. KISQALI [Suspect]
     Active Substance: RIBOCICLIB
     Dosage: UNK (END OF 2019)
     Route: 065
     Dates: start: 2019
  5. FEMARA [Suspect]
     Active Substance: LETROZOLE
     Indication: Breast cancer
     Dosage: 2.5 MG (1 TABLET A DAY)
     Route: 065
     Dates: start: 20191206
  6. FEMARA [Suspect]
     Active Substance: LETROZOLE
     Dosage: UNK
     Route: 065
     Dates: start: 201912
  7. FEMARA [Suspect]
     Active Substance: LETROZOLE
     Dosage: UNK (END OF 2019)
     Route: 065
     Dates: start: 2019
  8. GOSERELIN [Concomitant]
     Active Substance: GOSERELIN
     Indication: Product used for unknown indication
     Dosage: UNK
     Route: 065
  9. XGEVA [Concomitant]
     Active Substance: DENOSUMAB
     Indication: Product used for unknown indication
     Dosage: UNK
     Route: 065

REACTIONS (12)
  - Pain [Not Recovered/Not Resolved]
  - Bone pain [Recovering/Resolving]
  - Recurrent cancer [Unknown]
  - Spinal cord injury [Not Recovered/Not Resolved]
  - Metastases to bone [Unknown]
  - Metastasis [Unknown]
  - Spinal fracture [Unknown]
  - Sternal fracture [Unknown]
  - Spinal cord neoplasm [Unknown]
  - Spinal pain [Unknown]
  - Fracture [Not Recovered/Not Resolved]
  - Fatigue [Unknown]

NARRATIVE: CASE EVENT DATE: 20210701
